FAERS Safety Report 7826244-4 (Version None)
Quarter: 2011Q4

REPORT INFORMATION
  Report Type: 
  Country: None (occurrence: None)
  Receive Date: 20111020
  Receipt Date: 20111012
  Transmission Date: 20120403
  Serious: No
  Sender: FDA-Public Use
  Company Number: US-BIOGENIDEC-2010BI015548

PATIENT
  Age: 62 Year
  Sex: Female

DRUGS (1)
  1. TYSABRI [Suspect]
     Indication: MULTIPLE SCLEROSIS
     Route: 042
     Dates: start: 20090814

REACTIONS (9)
  - CHILLS [None]
  - HYPERSENSITIVITY [None]
  - VOMITING [None]
  - RESTLESSNESS [None]
  - RETCHING [None]
  - NAUSEA [None]
  - DRUG SPECIFIC ANTIBODY PRESENT [None]
  - BACK PAIN [None]
  - HEADACHE [None]
